FAERS Safety Report 11678695 (Version 2)
Quarter: 2015Q4

REPORT INFORMATION
  Report Type: Spontaneous
  Country: US (occurrence: US)
  Receive Date: 20151027
  Receipt Date: 20151104
  Transmission Date: 20160304
  Serious: No
  Sender: FDA-Public Use
  Company Number: US-ELI_LILLY_AND_COMPANY-US201008000569

PATIENT
  Age: 56 Year
  Sex: Female

DRUGS (5)
  1. VITAMINS [Concomitant]
     Active Substance: VITAMINS
  2. FORTEO [Suspect]
     Active Substance: TERIPARATIDE
     Dosage: 20 UG, DAILY (1/D)
  3. FORTEO [Suspect]
     Active Substance: TERIPARATIDE
     Dosage: 20 UG, QD
     Route: 065
  4. ANESTHETICS [Concomitant]
     Active Substance: UNSPECIFIED INGREDIENT
  5. FORTEO [Suspect]
     Active Substance: TERIPARATIDE
     Indication: OSTEOPOROSIS
     Dosage: 20 UG, DAILY (1/D)
     Dates: start: 20100715

REACTIONS (13)
  - Sleep disorder due to a general medical condition [Unknown]
  - Back pain [Unknown]
  - Poor quality sleep [Unknown]
  - Pain in extremity [Unknown]
  - Abnormal dreams [Unknown]
  - Night sweats [Unknown]
  - Nausea [Not Recovered/Not Resolved]
  - Malaise [Recovered/Resolved]
  - Pain [Unknown]
  - Arthralgia [Unknown]
  - Headache [Not Recovered/Not Resolved]
  - Abdominal discomfort [Recovered/Resolved]
  - Vomiting [Recovered/Resolved]

NARRATIVE: CASE EVENT DATE: 20100730
